FAERS Safety Report 8463083-8 (Version None)
Quarter: 2012Q2

REPORT INFORMATION
  Report Type: 
  Country: None (occurrence: None)
  Receive Date: 20120625
  Receipt Date: 20090710
  Transmission Date: 20120825
  Serious: Yes (Other)
  Sender: FDA-Public Use
  Company Number: LB-ROCHE-644688

PATIENT
  Age: 40 Year
  Sex: Female

DRUGS (7)
  1. HERCEPTIN [Suspect]
     Indication: BREAST CANCER METASTATIC
     Route: 042
  2. ADRIAMYCIN PFS [Concomitant]
  3. TAMOXIFEN CITRATE [Concomitant]
     Indication: BREAST CANCER METASTATIC
  4. CYCLOPHOSPHAMIDE [Concomitant]
  5. NAVELBINE [Concomitant]
     Indication: BREAST CANCER METASTATIC
  6. XELODA [Suspect]
     Indication: BREAST CANCER METASTATIC
     Route: 048
  7. FLUOROURACIL [Concomitant]

REACTIONS (1)
  - RENAL IMPAIRMENT [None]
